FAERS Safety Report 8987312 (Version 2)
Quarter: 2013Q1

REPORT INFORMATION
  Report Type: Spontaneous
  Country: JP (occurrence: JP)
  Receive Date: 20121226
  Receipt Date: 20130326
  Transmission Date: 20140127
  Serious: Yes (Other)
  Sender: FDA-Public Use
  Company Number: PHHY2012JP117955

PATIENT
  Age: 90 Year
  Sex: Male

DRUGS (2)
  1. ZOMETA [Suspect]
     Indication: METASTASES TO BONE
     Route: 041
  2. DEXAMETHASONE [Concomitant]

REACTIONS (4)
  - Compression fracture [Unknown]
  - Tooth loss [Recovered/Resolved]
  - Pain [Unknown]
  - Drug ineffective [Unknown]
